FAERS Safety Report 9447651 (Version 5)
Quarter: 2014Q2

REPORT INFORMATION
  Report Type: Spontaneous
  Country: US (occurrence: US)
  Receive Date: 20130808
  Receipt Date: 20140411
  Transmission Date: 20141212
  Serious: Yes (Hospitalization, Disabling, Other)
  Sender: FDA-Public Use
  Company Number: US-009507513-1308USA000222

PATIENT
  Sex: Female
  Weight: 80.73 kg

DRUGS (5)
  1. FOSAMAX [Suspect]
     Indication: OSTEOPOROSIS
     Dosage: 70 MG, QW
     Route: 048
     Dates: start: 20011228
  2. ALENDRONATE SODIUM [Suspect]
     Dosage: 70 MG, QW
  3. CALCIUM (UNSPECIFIED) [Concomitant]
  4. VITAMIN D (UNSPECIFIED) [Concomitant]
  5. RECLAST [Concomitant]
     Indication: OSTEOPOROSIS

REACTIONS (59)
  - Pathological fracture [Not Recovered/Not Resolved]
  - Femur fracture [Not Recovered/Not Resolved]
  - Renal failure chronic [Not Recovered/Not Resolved]
  - Knee arthroplasty [Unknown]
  - Hip arthroplasty [Unknown]
  - Hip arthroplasty [Unknown]
  - Hip arthroplasty [Unknown]
  - Renal failure acute [Recovered/Resolved]
  - Renal failure acute [Recovered/Resolved]
  - Urinary tract infection [Unknown]
  - Anaemia [Not Recovered/Not Resolved]
  - Chronic respiratory failure [Not Recovered/Not Resolved]
  - Intervertebral disc protrusion [Unknown]
  - Rotator cuff repair [Unknown]
  - Constipation [Unknown]
  - Hypertension [Unknown]
  - Hyperlipidaemia [Unknown]
  - Rheumatoid arthritis [Unknown]
  - Adverse event [Unknown]
  - Impaired healing [Unknown]
  - Osteoarthritis [Unknown]
  - Osteoarthritis [Unknown]
  - Blood creatinine increased [Unknown]
  - Cardiac failure congestive [Recovered/Resolved with Sequelae]
  - Cardiomyopathy [Recovered/Resolved]
  - Grief reaction [Recovered/Resolved]
  - Neuropathy peripheral [Unknown]
  - Restless legs syndrome [Unknown]
  - Irritable bowel syndrome [Unknown]
  - Dyspnoea [Unknown]
  - Adenotonsillectomy [Unknown]
  - Facial bones fracture [Unknown]
  - Rhinoplasty [Unknown]
  - Uterine dilation and curettage [Unknown]
  - Hysterectomy [Unknown]
  - Venous ligation [Unknown]
  - Peripheral venous disease [Unknown]
  - Bladder neck suspension [Unknown]
  - Cataract operation [Unknown]
  - Intraocular lens implant [Unknown]
  - Haemorrhagic anaemia [Unknown]
  - Cellulitis [Unknown]
  - Depression [Unknown]
  - Haemorrhagic anaemia [Unknown]
  - Hypotension [Unknown]
  - Haemorrhagic anaemia [Unknown]
  - Cardiac failure congestive [Unknown]
  - Pleural effusion [Unknown]
  - Fall [Unknown]
  - Rotator cuff syndrome [Unknown]
  - Procedural hypotension [Unknown]
  - Insomnia [Unknown]
  - Pain [Unknown]
  - Sleep disorder [Unknown]
  - Cardiac failure congestive [Unknown]
  - Urinary tract infection [Unknown]
  - Asthenia [Unknown]
  - Back pain [Not Recovered/Not Resolved]
  - Gastrooesophageal reflux disease [Unknown]
